FAERS Safety Report 13608733 (Version 1)
Quarter: 2017Q2

REPORT INFORMATION
  Report Type: Spontaneous
  Country: US (occurrence: US)
  Receive Date: 20170602
  Receipt Date: 20170602
  Transmission Date: 20170830
  Serious: Yes (Other)
  Sender: FDA-Public Use
  Company Number: US-MYLANLABS-2017M1032900

PATIENT

DRUGS (10)
  1. ARIPIPRAZOLE. [Concomitant]
     Active Substance: ARIPIPRAZOLE
     Dosage: EVERY NIGHT BEFORE BEDTIME
     Route: 048
  2. ARIPIPRAZOLE. [Concomitant]
     Active Substance: ARIPIPRAZOLE
     Indication: ATTENTION DEFICIT/HYPERACTIVITY DISORDER
     Dosage: EVERY NIGHT BEFORE BEDTIME
     Route: 048
  3. ESCITALOPRAM [Concomitant]
     Active Substance: ESCITALOPRAM OXALATE
     Indication: ANXIETY
     Dosage: EVERY MORNING, DOSE INCREASED TO 20MG
     Route: 048
  4. ESCITALOPRAM [Concomitant]
     Active Substance: ESCITALOPRAM OXALATE
     Dosage: EVERY MORNING
     Route: 048
  5. LITHIUM. [Suspect]
     Active Substance: LITHIUM
     Indication: ATTENTION DEFICIT/HYPERACTIVITY DISORDER
     Dosage: FROM THE AGE OF 10 YEARS
     Route: 048
  6. LITHIUM. [Suspect]
     Active Substance: LITHIUM
     Route: 048
  7. LITHIUM. [Suspect]
     Active Substance: LITHIUM
     Route: 048
  8. LITHIUM. [Suspect]
     Active Substance: LITHIUM
     Route: 048
  9. GUANFACINE. [Concomitant]
     Active Substance: GUANFACINE
     Indication: ATTENTION DEFICIT/HYPERACTIVITY DISORDER
     Dosage: LATER TITRATED TO 2MG PO BID
     Route: 048
  10. GUANFACINE. [Concomitant]
     Active Substance: GUANFACINE
     Route: 048

REACTIONS (2)
  - Atrioventricular block first degree [Recovered/Resolved]
  - Weight increased [Unknown]
